FAERS Safety Report 5835141-5 (Version None)
Quarter: 2008Q3

REPORT INFORMATION
  Report Type: 
  Country: None (occurrence: None)
  Receive Date: 20080805
  Receipt Date: 20080805
  Transmission Date: 20090109
  Serious: No
  Sender: FDA-Public Use
  Company Number: None

PATIENT
  Age: 66 Year
  Sex: Male
  Weight: 102 kg

DRUGS (1)
  1. LETAIRIS [Suspect]
     Dosage: 5MG DAILY PO   ~3 DAYS PRIOR TO ADMISSION
     Route: 048

REACTIONS (3)
  - BLOOD CREATINE INCREASED [None]
  - SWELLING [None]
  - URINARY RETENTION [None]
